FAERS Safety Report 4434107-X (Version None)
Quarter: 2004Q3

REPORT INFORMATION
  Report Type: 
  Country: None (occurrence: None)
  Receive Date: 20040826
  Receipt Date: 20040818
  Transmission Date: 20050211
  Serious: Yes (Other)
  Sender: FDA-Public Use
  Company Number: PHBS2004IT10877

PATIENT
  Age: 51 Year
  Sex: Female

DRUGS (2)
  1. IMATINIB [Suspect]
     Indication: CHRONIC MYELOID LEUKAEMIA
     Dosage: 400 MG/DAY
     Dates: start: 20020801
  2. IMATINIB [Suspect]
     Dosage: 400 MG/DAY

REACTIONS (6)
  - BONE MARROW DEPRESSION [None]
  - BONE MARROW TRANSPLANT [None]
  - LEUKOPENIA [None]
  - PANCYTOPENIA [None]
  - THROMBOCYTOPENIA [None]
  - TRISOMY 8 [None]
